FAERS Safety Report 25410525 (Version 2)
Quarter: 2025Q2

REPORT INFORMATION
  Report Type: Spontaneous
  Country: US (occurrence: US)
  Receive Date: 20250608
  Receipt Date: 20250623
  Transmission Date: 20250716
  Serious: No
  Sender: BAUSCH AND LOMB
  Company Number: US-BAUSCHBL-2025BNL009738

PATIENT
  Age: 62 Year
  Sex: Female

DRUGS (3)
  1. MIEBO [Suspect]
     Active Substance: PERFLUOROHEXYLOCTANE
     Indication: Product used for unknown indication
     Route: 047
  2. MIEBO [Suspect]
     Active Substance: PERFLUOROHEXYLOCTANE
     Route: 047
  3. REFRESH CLASSIC [Concomitant]
     Active Substance: POLYVINYL ALCOHOL\POVIDONE
     Indication: Product used for unknown indication

REACTIONS (9)
  - Stress [Unknown]
  - Product use issue [Unknown]
  - Product complaint [Unknown]
  - Product delivery mechanism issue [Unknown]
  - Wrong technique in product usage process [Unknown]
  - Therapy interrupted [Unknown]
  - Wrong dose [Unknown]
  - Intentional product use issue [Unknown]
  - Product availability issue [Unknown]
